FAERS Safety Report 13889551 (Version 1)
Quarter: 2017Q3

REPORT INFORMATION
  Report Type: Spontaneous
  Country: US (occurrence: US)
  Receive Date: 20170822
  Receipt Date: 20170822
  Transmission Date: 20171127
  Serious: No
  Sender: FDA-Public Use
  Company Number: US-ROCHE-1340474

PATIENT
  Sex: Female

DRUGS (1)
  1. ACTEMRA [Suspect]
     Active Substance: TOCILIZUMAB
     Indication: PRODUCT USED FOR UNKNOWN INDICATION
     Route: 058

REACTIONS (8)
  - Sensory disturbance [Unknown]
  - Abdominal pain upper [Unknown]
  - Injection site rash [Unknown]
  - Irritability [Unknown]
  - Peripheral swelling [Unknown]
  - Feeling of despair [Unknown]
  - Rash [Unknown]
  - Hyperchlorhydria [Unknown]
